FAERS Safety Report 20951379 (Version 13)
Quarter: 2024Q2

REPORT INFORMATION
  Report Type: Spontaneous
  Country: US (occurrence: US)
  Receive Date: 20220613
  Receipt Date: 20240620
  Transmission Date: 20240716
  Serious: Yes (Other)
  Sender: FDA-Public Use
  Company Number: US-PFIZER INC-202200427341

PATIENT
  Age: 84 Year
  Sex: Female

DRUGS (15)
  1. XELJANZ [Suspect]
     Active Substance: TOFACITINIB CITRATE
     Indication: Rheumatoid arthritis
     Dosage: 5 MG, 2X/DAY (5 MG PO BID)
     Route: 048
     Dates: start: 2021
  2. XELJANZ [Suspect]
     Active Substance: TOFACITINIB CITRATE
     Dosage: 10 MG
     Route: 048
  3. XELJANZ [Suspect]
     Active Substance: TOFACITINIB CITRATE
     Dosage: UNK, 2X/DAY (10 MG HALF OF TABLET)
     Route: 048
  4. XELJANZ [Suspect]
     Active Substance: TOFACITINIB CITRATE
     Dosage: 5 MG, 1X/DAY (1 TABLET A DAY)
     Route: 048
  5. PANTOPRAZOLE [Concomitant]
     Active Substance: PANTOPRAZOLE
     Dosage: UNK
  6. TYLENOL [Concomitant]
     Active Substance: ACETAMINOPHEN
     Dosage: UNK
  7. LOSARTAN [Concomitant]
     Active Substance: LOSARTAN
     Dosage: UNK
  8. ARAVA [Concomitant]
     Active Substance: LEFLUNOMIDE
     Dosage: UNK
  9. ALBUTEROL [Concomitant]
     Active Substance: ALBUTEROL
     Dosage: UNK
  10. ARISTOCORT [TRIAMCINOLONE] [Concomitant]
     Dosage: UNK
  11. FLOVENT [Concomitant]
     Active Substance: FLUTICASONE PROPIONATE
     Dosage: UNK
  12. COZAAR [Concomitant]
     Active Substance: LOSARTAN POTASSIUM
     Dosage: UNK
  13. ZYRTEC [Concomitant]
     Active Substance: CETIRIZINE HYDROCHLORIDE
     Dosage: UNK
  14. CLOBETASOL [Concomitant]
     Active Substance: CLOBETASOL
     Dosage: UNK
  15. CALCIUM [Concomitant]
     Active Substance: CALCIUM
     Dosage: UNK

REACTIONS (17)
  - Dementia [Not Recovered/Not Resolved]
  - Glaucoma [Unknown]
  - Infection [Unknown]
  - Haemoglobin decreased [Unknown]
  - Gastrointestinal haemorrhage [Not Recovered/Not Resolved]
  - Wrong technique in product usage process [Unknown]
  - Skin disorder [Unknown]
  - C-reactive protein increased [Unknown]
  - Red blood cell sedimentation rate increased [Unknown]
  - Urinary incontinence [Unknown]
  - Blood glucose abnormal [Unknown]
  - Fatigue [Unknown]
  - Serum ferritin abnormal [Unknown]
  - Gastrointestinal ulcer [Not Recovered/Not Resolved]
  - Urinary tract infection [Unknown]
  - Osteoarthritis [Unknown]
  - Serum ferritin increased [Recovering/Resolving]

NARRATIVE: CASE EVENT DATE: 20220101
